FAERS Safety Report 26077086 (Version 1)
Quarter: 2025Q4

REPORT INFORMATION
  Report Type: Report from Study
  Country: GB (occurrence: None)
  Receive Date: 20251121
  Receipt Date: 20251121
  Transmission Date: 20260118
  Serious: Yes (Life-Threatening, Hospitalization, Other)
  Sender: UCB
  Company Number: GB-UCBSA-2025015211

PATIENT
  Age: 41 Year
  Weight: 75.8 kg

DRUGS (12)
  1. BIMEKIZUMAB [Suspect]
     Active Substance: BIMEKIZUMAB
     Indication: Axial spondyloarthritis
     Dosage: UNK UNK, MONTHLY (QM)
  2. BIMEKIZUMAB [Suspect]
     Active Substance: BIMEKIZUMAB
     Dosage: 160 MILLIGRAM, MONTHLY (QM)
  3. spi [Concomitant]
     Indication: Product used for unknown indication
     Dosage: 25 MILLIGRAM, ONCE DAILY (QD)
  4. AMLODIPINE [Concomitant]
     Active Substance: AMLODIPINE BESYLATE
     Indication: Product used for unknown indication
     Dosage: 10 MILLIGRAM, ONCE DAILY (QD)
  5. ACETAMINOPHEN [Concomitant]
     Active Substance: ACETAMINOPHEN
     Indication: Product used for unknown indication
     Dosage: 1000 MILLIGRAM, 4X/DAY (QID)
  6. BISOPROLOL [Concomitant]
     Active Substance: BISOPROLOL
     Indication: Product used for unknown indication
     Dosage: 2.5 MILLIGRAM, ONCE DAILY (QD) NOCTE
  7. BISOPROLOL [Concomitant]
     Active Substance: BISOPROLOL
     Dosage: 2.5 MILLIGRAM, ONCE DAILY (QD) NOCTE
  8. BISOPROLOL [Concomitant]
     Active Substance: BISOPROLOL
     Dosage: 1.25 MILLIGRAM
  9. SODIUM BICARBONATE [Concomitant]
     Active Substance: SODIUM BICARBONATE
     Indication: Product used for unknown indication
     Dosage: 500 MILLIGRAM BD
  10. SODIUM BICARBONATE [Concomitant]
     Active Substance: SODIUM BICARBONATE
     Dosage: 1000 MILLIGRAM, 2X/DAY (BID)
  11. RETACRIT [Concomitant]
     Active Substance: EPOETIN ALFA-EPBX
     Indication: Product used for unknown indication
     Dosage: UNK, 4000 UNITS FORTNIGHTLY
  12. WHOLE BLOOD [Concomitant]
     Active Substance: WHOLE BLOOD
     Indication: Product used for unknown indication
     Dosage: UNK, TRANSFUSION

REACTIONS (12)
  - IgA nephropathy [Not Recovered/Not Resolved]
  - Acute kidney injury [Recovering/Resolving]
  - Syncope [Not Recovered/Not Resolved]
  - Intensive care [Unknown]
  - Circulatory collapse [Unknown]
  - Oral candidiasis [Recovering/Resolving]
  - Blood test abnormal [Not Recovered/Not Resolved]
  - Onychomycosis [Not Recovered/Not Resolved]
  - Anaemia [Not Recovered/Not Resolved]
  - Cardiac disorder [Unknown]
  - Lung consolidation [Unknown]
  - Mediastinal mass [Unknown]
